FAERS Safety Report 7258166-4 (Version None)
Quarter: 2011Q1

REPORT INFORMATION
  Report Type: 
  Country: None (occurrence: None)
  Receive Date: 20110129
  Receipt Date: 20100702
  Transmission Date: 20110831
  Serious: No
  Sender: FDA-Public Use
  Company Number: US-ABBOTT-10P-163-0655636-00

PATIENT
  Sex: Male
  Weight: 90.8 kg

DRUGS (4)
  1. HUMIRA [Suspect]
     Indication: PSORIASIS
  2. HUMIRA [Suspect]
     Indication: PSORIATIC ARTHROPATHY
     Dates: start: 20100601, end: 20100628
  3. TYLENOL W/ CODEINE NO. 3 [Concomitant]
     Indication: MIGRAINE
  4. TRAMADOL HCL [Concomitant]
     Indication: MIGRAINE

REACTIONS (4)
  - MIGRAINE [None]
  - INSOMNIA [None]
  - FATIGUE [None]
  - FEELING ABNORMAL [None]
